FAERS Safety Report 14206949 (Version 1)
Quarter: 2017Q4

REPORT INFORMATION
  Report Type: Spontaneous
  Country: CL (occurrence: CL)
  Receive Date: 20171121
  Receipt Date: 20171121
  Transmission Date: 20180321
  Serious: Yes (Death, Other)
  Sender: FDA-Public Use
  Company Number: CL-009507513-1711CHL007158

PATIENT
  Age: 86 Year
  Sex: Female

DRUGS (1)
  1. JANUMET [Suspect]
     Active Substance: METFORMIN HYDROCHLORIDE\SITAGLIPTIN PHOSPHATE
     Dosage: 50/500 MG
     Route: 048
     Dates: start: 2011

REACTIONS (3)
  - Myocardial infarction [Fatal]
  - Contraindicated drug prescribed [Unknown]
  - Off label use [Unknown]

NARRATIVE: CASE EVENT DATE: 201709
